FAERS Safety Report 20049607 (Version 1)
Quarter: 2021Q4

REPORT INFORMATION
  Report Type: Report from Study
  Country: CL (occurrence: CL)
  Receive Date: 20211109
  Receipt Date: 20211109
  Transmission Date: 20220304
  Serious: Yes (Death, Other)
  Sender: FDA-Public Use
  Company Number: CL-BRISTOL-MYERS SQUIBB COMPANY-BMS-2021-118582

PATIENT
  Age: 77 Year
  Sex: Female

DRUGS (1)
  1. DASATINIB [Suspect]
     Active Substance: DASATINIB
     Indication: Chronic myeloid leukaemia
     Dosage: 100 MG, FREQUENCY: DAYS (30 UNITS)
     Route: 048
     Dates: start: 20200229

REACTIONS (1)
  - Death [Fatal]

NARRATIVE: CASE EVENT DATE: 20211008
